FAERS Safety Report 12265874 (Version 1)
Quarter: 2016Q2

REPORT INFORMATION
  Report Type: Spontaneous
  Country: US (occurrence: US)
  Receive Date: 20160413
  Receipt Date: 20160413
  Transmission Date: 20160815
  Serious: No
  Sender: FDA-Public Use
  Company Number: US-TRIS PHARMA, INC.-1050535

PATIENT
  Age: 15 Year
  Sex: Female

DRUGS (3)
  1. DEXTROMETHORPHAN POLISTIREX ER OS 6 MG/ML [Suspect]
     Active Substance: DEXTROMETHORPHAN HYDROBROMIDE
     Indication: NASOPHARYNGITIS
     Route: 048
     Dates: start: 20150918, end: 20150918
  2. NOVOLOG [Concomitant]
     Active Substance: INSULIN ASPART
  3. AMOXICILLAN [Concomitant]
     Active Substance: AMOXICILLIN
     Dates: start: 20150917, end: 20150922

REACTIONS (1)
  - Retching [Recovered/Resolved]

NARRATIVE: CASE EVENT DATE: 20150918
